FAERS Safety Report 4661108-9 (Version None)
Quarter: 2005Q2

REPORT INFORMATION
  Report Type: 
  Country: None (occurrence: None)
  Receive Date: 20050511
  Receipt Date: 20050427
  Transmission Date: 20051028
  Serious: Yes (Other)
  Sender: FDA-Public Use
  Company Number: 2005053949

PATIENT
  Age: 79 Year
  Sex: Male

DRUGS (4)
  1. CABERGOLINE [Suspect]
     Indication: PARKINSON'S DISEASE
     Dosage: 0.5 MG (DAILY), ORAL
     Route: 048
     Dates: start: 20040428, end: 20041220
  2. PERGOLIDE MESYLATE [Suspect]
     Indication: PARKINSON'S DISEASE
     Dosage: 0.75 MG, ORAL
     Route: 048
     Dates: start: 20041221, end: 20050414
  3. MADOPAR            (BENSERAZIDE HYDROCHLORIDE LEVODOPA) [Concomitant]
  4. SELEGILINE HCL [Concomitant]

REACTIONS (2)
  - CARDIAC VALVE DISEASE [None]
  - FIBROSIS [None]
